FAERS Safety Report 15454783 (Version 1)
Quarter: 2018Q4

REPORT INFORMATION
  Report Type: Spontaneous
  Country: GB (occurrence: GB)
  Receive Date: 20181002
  Receipt Date: 20181002
  Transmission Date: 20190204
  Serious: Yes (Other)
  Sender: FDA-Public Use
  Company Number: GB-BRISTOL-MYERS SQUIBB COMPANY-BMS-2018-087470

PATIENT
  Age: 68 Year
  Sex: Male

DRUGS (6)
  1. WARFARIN SODIUM. [Suspect]
     Active Substance: WARFARIN SODIUM
     Indication: PRODUCT USED FOR UNKNOWN INDICATION
     Dosage: 1 MG, PRN (1 MG OR3 MG PRN)
     Route: 048
  2. SODIUM ALGINATE [Suspect]
     Active Substance: SODIUM ALGINATE
     Indication: PRODUCT USED FOR UNKNOWN INDICATION
     Dosage: UNK, PRN (100/500MG)
     Route: 048
  3. DEXAMETHASONE. [Suspect]
     Active Substance: DEXAMETHASONE
     Indication: PRODUCT USED FOR UNKNOWN INDICATION
     Dosage: 0.1 %, QD AT AN INTERVAL OF 1 DAY
     Route: 047
  4. DIGOXIN. [Suspect]
     Active Substance: DIGOXIN
     Indication: PRODUCT USED FOR UNKNOWN INDICATION
     Dosage: 1 DF= 125 UG , QD AT AN INTERVAL OF 1 DAY
     Route: 048
     Dates: start: 2016
  5. DIGOXIN. [Suspect]
     Active Substance: DIGOXIN
     Indication: PRODUCT USED FOR UNKNOWN INDICATION
     Dosage: 1 DF= 62.5 UG , QD AT AN INTERVAL 1 DAY
     Route: 048
     Dates: start: 2016
  6. ENTRESTO [Suspect]
     Active Substance: SACUBITRIL\VALSARTAN
     Indication: PRODUCT USED FOR UNKNOWN INDICATION
     Dosage: 200 MG, BID AT AN INTERVAL OF 1 DAY
     Route: 048
     Dates: start: 20180413

REACTIONS (2)
  - Syncope [Recovered/Resolved]
  - Atrial tachycardia [Unknown]

NARRATIVE: CASE EVENT DATE: 20180907
